FAERS Safety Report 9294238 (Version 1)
Quarter: 2013Q2

REPORT INFORMATION
  Report Type: Spontaneous
  Country: US (occurrence: US)
  Receive Date: 20130517
  Receipt Date: 20130517
  Transmission Date: 20140414
  Serious: No
  Sender: FDA-Public Use
  Company Number: US-009507513-1305USA008306

PATIENT
  Sex: Female

DRUGS (4)
  1. MAXALT [Suspect]
     Dosage: UNK
     Route: 048
     Dates: start: 201301, end: 2013
  2. PERCOCET [Concomitant]
  3. COUMADIN [Concomitant]
  4. TOPAMAX [Concomitant]

REACTIONS (2)
  - Headache [Unknown]
  - Drug ineffective [Unknown]
